FAERS Safety Report 15473917 (Version 2)
Quarter: 2018Q4

REPORT INFORMATION
  Report Type: Spontaneous
  Country: US (occurrence: US)
  Receive Date: 20181008
  Receipt Date: 20181031
  Transmission Date: 20190205
  Serious: No
  Sender: FDA-Public Use
  Company Number: US-SA-2018SA271801

PATIENT
  Age: 29 Year
  Sex: Female

DRUGS (1)
  1. APIDRA [Suspect]
     Active Substance: INSULIN GLULISINE
     Indication: TYPE 1 DIABETES MELLITUS
     Dosage: 1 UNIT PER 25 CARBS AND 1 UNIT PER EVERY 70 OVER HER BLOOD SUGAR RANGE
     Route: 065

REACTIONS (5)
  - Cough [Unknown]
  - Glycosylated haemoglobin increased [Unknown]
  - Malaise [Unknown]
  - Hyperglycaemia [Unknown]
  - Product quality issue [Unknown]
